FAERS Safety Report 11529419 (Version 1)
Quarter: 2015Q3

REPORT INFORMATION
  Report Type: Spontaneous
  Country: US (occurrence: None)
  Receive Date: 20150918
  Receipt Date: 20150918
  Transmission Date: 20151125
  Serious: Yes (Congenital Anomaly)
  Sender: FDA-Public Use
  Company Number: None

PATIENT
  Age: 31 Year
  Sex: Female
  Weight: 58.97 kg

DRUGS (2)
  1. ODANSETRON 4 MG GLENMARK + SANDOZ [Suspect]
     Active Substance: ONDANSETRON
     Indication: VOMITING IN PREGNANCY
     Dosage: 1 TO 2 PILLS  AS NEEDED  TAKEN BY MOUTH
     Route: 048
     Dates: start: 20131227, end: 20140331
  2. CITRANATAL 90 DHA [Concomitant]
     Active Substance: ALPHA-TOCOPHEROL ACETATE\ASCORBIC ACID\CALCIUM CITRATE\CUPRIC OXIDE\DOCUSATE SODIUM\FOLIC ACID\IRON\NIACINAMIDE\POTASSIUM TRIIODIDE\PYRIDOXINE HYDROCHLORIDE\RIBOPRINE\THIAMINE\VITAMIN D\ZINC OXIDE

REACTIONS (3)
  - Maternal exposure during pregnancy [None]
  - Congenital pseudarthrosis [None]
  - Maternal drugs affecting foetus [None]

NARRATIVE: CASE EVENT DATE: 20140816
